FAERS Safety Report 9326846 (Version 2)
Quarter: 2013Q2

REPORT INFORMATION
  Report Type: Spontaneous
  Country: GB (occurrence: None)
  Receive Date: 20130522
  Receipt Date: 20130529
  Transmission Date: 20140414
  Serious: Yes (Other)
  Sender: FDA-Public Use
  Company Number: 2013036075

PATIENT
  Age: 47 Year
  Sex: Female

DRUGS (5)
  1. PRIVIGEN [Suspect]
     Indication: NEUROMYELITIS OPTICA
     Dosage: 60 G 1X/6 WEEKS, 5 DOSES OF 4324100045, 2 DOSES OF 4324000024
     Route: 042
     Dates: start: 20110119
  2. CLOMYCIN /00013201/ (COLISTIN) [Concomitant]
  3. SINGULAIR [Concomitant]
  4. SYMBICORT [Concomitant]
  5. OXYBUTYNIN HYDROCHLORIDE (OXYBUTYNIN HYDROCHLORIDE) [Concomitant]

REACTIONS (2)
  - Back pain [None]
  - Headache [None]
